FAERS Safety Report 6787560-0 (Version None)
Quarter: 2010Q2

REPORT INFORMATION
  Report Type: 
  Country: None (occurrence: None)
  Receive Date: 20100623
  Receipt Date: 20100615
  Transmission Date: 20101027
  Serious: Yes (Other)
  Sender: FDA-Public Use
  Company Number: GB-MERCK-1006GBR00082

PATIENT
  Sex: Female

DRUGS (1)
  1. COZAAR [Suspect]
     Route: 048
     Dates: start: 20010301

REACTIONS (1)
  - BREAST DISORDER [None]
